FAERS Safety Report 7108483-3 (Version None)
Quarter: 2010Q4

REPORT INFORMATION
  Report Type: 
  Country: None (occurrence: None)
  Receive Date: 20101112
  Receipt Date: 20101105
  Transmission Date: 20110411
  Serious: Yes (Other)
  Sender: FDA-Public Use
  Company Number: 2010SP042548

PATIENT
  Age: 18 Year
  Sex: Male

DRUGS (1)
  1. REMERON [Suspect]
     Indication: PRODUCT USED FOR UNKNOWN INDICATION
     Dosage: 150 MG; ONCE; PO
     Route: 048
     Dates: start: 20100803, end: 20100803

REACTIONS (2)
  - INTENTIONAL SELF-INJURY [None]
  - OVERDOSE [None]
